FAERS Safety Report 9639786 (Version 1)
Quarter: 2013Q4

REPORT INFORMATION
  Report Type: Spontaneous
  Country: US (occurrence: US)
  Receive Date: 20131023
  Receipt Date: 20131023
  Transmission Date: 20140711
  Serious: Yes (Other)
  Sender: FDA-Public Use
  Company Number: US-SA-2013SA104683

PATIENT
  Sex: Female

DRUGS (4)
  1. LANTUS [Suspect]
     Route: 058
  2. LANTUS SOLOSTAR [Suspect]
     Route: 058
  3. SOLOSTAR [Concomitant]
  4. HUMULIN R [Concomitant]
     Route: 065
     Dates: start: 1990

REACTIONS (2)
  - Coronary artery disease [Unknown]
  - Visual impairment [Unknown]
